FAERS Safety Report 9557659 (Version 3)
Quarter: 2014Q1

REPORT INFORMATION
  Report Type: Report from Study
  Country: US (occurrence: US)
  Receive Date: 20130926
  Receipt Date: 20140113
  Transmission Date: 20141002
  Serious: Yes (Other)
  Sender: FDA-Public Use
  Company Number: US-GLAXOSMITHKLINE-Z0021220A

PATIENT
  Age: 57 Year
  Sex: Female
  Weight: 109.5 kg

DRUGS (1)
  1. DABRAFENIB [Suspect]
     Indication: THYROID NEOPLASM
     Dosage: 150MG TWICE PER DAY
     Route: 048
     Dates: start: 20120215

REACTIONS (1)
  - Breast cancer [Recovering/Resolving]
